FAERS Safety Report 18620712 (Version 2)
Quarter: 2021Q1

REPORT INFORMATION
  Report Type: Report from Study
  Country: NL (occurrence: NL)
  Receive Date: 20201215
  Receipt Date: 20210121
  Transmission Date: 20210419
  Serious: Yes (Hospitalization, Other)
  Sender: FDA-Public Use
  Company Number: NL-GILEAD-2020-0505033

PATIENT
  Age: 69 Year
  Sex: Male
  Weight: 86 kg

DRUGS (13)
  1. MESNA. [Suspect]
     Active Substance: MESNA
     Indication: BONE MARROW CONDITIONING REGIMEN
     Dosage: UNK
     Route: 065
     Dates: start: 20201105
  2. VALACICLOVIR [Concomitant]
     Active Substance: VALACYCLOVIR HYDROCHLORIDE
     Dosage: UNK
     Dates: start: 20201110
  3. FUROSEMIDE. [Concomitant]
     Active Substance: FUROSEMIDE
     Dosage: 20 MG, BID
     Route: 048
     Dates: start: 20201222, end: 20210105
  4. KTE?X19 [Suspect]
     Active Substance: AXICABTAGENE CILOLEUCEL
     Indication: MANTLE CELL LYMPHOMA
     Dosage: UNK
     Route: 042
     Dates: start: 20201110, end: 20201110
  5. CYCLOPHOSPHAMIDE. [Suspect]
     Active Substance: CYCLOPHOSPHAMIDE
     Indication: BONE MARROW CONDITIONING REGIMEN
     Dosage: UNK
     Route: 065
     Dates: start: 20201105
  6. FUROSEMIDE. [Concomitant]
     Active Substance: FUROSEMIDE
     Dosage: 20 MG, QD
     Dates: start: 20201105, end: 20201120
  7. ONDANSETRON [Concomitant]
     Active Substance: ONDANSETRON
     Indication: NAUSEA
     Dosage: 8 MG, BID
     Dates: start: 20201105, end: 20201117
  8. COTRIMOXAZOL [Concomitant]
     Active Substance: SULFAMETHOXAZOLE\TRIMETHOPRIM
     Dosage: UNK
     Dates: start: 20201228
  9. PARACETAMOL [Concomitant]
     Active Substance: ACETAMINOPHEN
     Indication: PYREXIA
     Dosage: 1000 MG 1?4X/DAY
     Dates: start: 20201111, end: 20201118
  10. CLEMASTINE [Concomitant]
     Active Substance: CLEMASTINE
     Dosage: UNK
     Dates: start: 20201110, end: 20201110
  11. METOCLOPRAMIDE. [Concomitant]
     Active Substance: METOCLOPRAMIDE
     Indication: NAUSEA
     Dosage: 10 MG, TID PRN
     Dates: start: 20201105, end: 20201120
  12. FLUDARABINE [Suspect]
     Active Substance: FLUDARABINE PHOSPHATE
     Indication: BONE MARROW CONDITIONING REGIMEN
     Dosage: UNK
     Route: 065
     Dates: start: 20201105
  13. COTRIMOXAZOL [Concomitant]
     Active Substance: SULFAMETHOXAZOLE\TRIMETHOPRIM
     Dosage: UNK
     Dates: start: 20201110, end: 20201215

REACTIONS (16)
  - Headache [Recovered/Resolved]
  - Pyrexia [Recovered/Resolved]
  - Neutrophil count decreased [Recovered/Resolved]
  - Hypotension [Recovered/Resolved]
  - Peripheral swelling [Recovered/Resolved]
  - Cytokine release syndrome [Recovered/Resolved]
  - Neutrophil count decreased [Not Recovered/Not Resolved]
  - Vomiting [Recovered/Resolved]
  - Hypoxia [Recovered/Resolved]
  - Autoimmune haemolytic anaemia [Not Recovered/Not Resolved]
  - Atrial fibrillation [Recovered/Resolved]
  - Chills [Recovered/Resolved]
  - Bradyphrenia [Recovered/Resolved]
  - Immune effector cell-associated neurotoxicity syndrome [Recovered/Resolved]
  - Vision blurred [Recovered/Resolved]
  - White blood cell count decreased [Not Recovered/Not Resolved]

NARRATIVE: CASE EVENT DATE: 20201111
